FAERS Safety Report 6933461-4 (Version None)
Quarter: 2010Q3

REPORT INFORMATION
  Report Type: 
  Country: None (occurrence: None)
  Receive Date: 20100820
  Receipt Date: 20100809
  Transmission Date: 20110219
  Serious: Yes (Other)
  Sender: FDA-Public Use
  Company Number: US-PFIZER INC-2010055304

PATIENT
  Sex: Male

DRUGS (5)
  1. CHANTIX [Suspect]
     Indication: SMOKING CESSATION THERAPY
     Dosage: STARTER PACK TO CONTINUING PACK
     Dates: start: 20080701, end: 20080801
  2. VICODIN [Concomitant]
     Indication: PAIN
     Dosage: UNK
     Dates: start: 20030101, end: 20090101
  3. TRAMADOL [Concomitant]
     Indication: PAIN
     Dosage: UNK
     Dates: start: 20030101, end: 20090101
  4. NAPROXEN [Concomitant]
     Indication: PAIN
     Dosage: UNK
     Dates: start: 20050101, end: 20090101
  5. NAPROXEN [Concomitant]
     Indication: SWELLING

REACTIONS (6)
  - DEPRESSION [None]
  - HALLUCINATION [None]
  - INSOMNIA [None]
  - IRRITABILITY [None]
  - NIGHTMARE [None]
  - SUICIDAL IDEATION [None]
